FAERS Safety Report 5332504-1 (Version None)
Quarter: 2007Q2

REPORT INFORMATION
  Report Type: 
  Country: None (occurrence: None)
  Receive Date: 20070518
  Receipt Date: 20070504
  Transmission Date: 20071010
  Serious: Yes (Death)
  Sender: FDA-Public Use
  Company Number: 100#03#2006-01548

PATIENT
  Age: 63 Year
  Sex: Female

DRUGS (12)
  1. CITALOPRAM HYDROBROMIDE [Suspect]
     Indication: DRUG USE FOR UNKNOWN INDICATION
     Dosage: 10 MG (1DAYS)
     Route: 048
  2. OMEPRAZOLE [Suspect]
     Indication: DRUG USE FOR UNKNOWN INDICATION
     Dosage: 20 MG (1 / 1DAYS)
     Route: 048
  3. PERINDOPRIL (PERINDOPRIL) (PERINDOPRIL) [Suspect]
     Indication: HYPERTENSION
     Dosage: 4 MG (1 / 1DAYS)
     Route: 048
  4. ADIZEM-SR (DILTIAZEM HYDROCHLORIDE) (DILTIAZEM HYDROCHLORIDE) [Concomitant]
  5. BECOTIDE (BECLOMETASONE DIPROPIONATE) (BECLOMETHASONE) [Concomitant]
  6. FUROSEMIDE [Concomitant]
  7. OLANZAPINE (OLANZAPINE) (OLANZAPINE) [Concomitant]
  8. PARACETAMOL (PARACETAMOL) (PARACETAMOL) [Concomitant]
  9. SALBUTAMOL (SALBUTAMOL) (SALBUTAMOL) [Concomitant]
  10. SENNA (SENNA ALEXANDRINA) (SENNA ALEXANDRINA) [Concomitant]
  11. THIAMINE (THIAMINE) (THIAMINE) [Concomitant]
  12. VITAMIN B COMPLEX (NICOTINAM, W/PYRIDOXI, HCL/RIBOFL./THIAM. HCL) (B C [Concomitant]

REACTIONS (4)
  - ANGIOEDEMA [None]
  - HYPERSENSITIVITY [None]
  - LARYNGEAL OEDEMA [None]
  - SWELLING FACE [None]
